FAERS Safety Report 8008004-7 (Version None)
Quarter: 2011Q4

REPORT INFORMATION
  Report Type: 
  Country: None (occurrence: None)
  Receive Date: 20111221
  Receipt Date: 20111212
  Transmission Date: 20120403
  Serious: Yes (Disabling, Other)
  Sender: FDA-Public Use
  Company Number: AUR-APU-2011-02838

PATIENT
  Sex: Female

DRUGS (1)
  1. ALENDRONIC ACID (ALENDRONIC ACID) [Suspect]
     Indication: OSTEOPOROSIS
     Dosage: (1 IN 1 WK),

REACTIONS (7)
  - NAUSEA [None]
  - MOBILITY DECREASED [None]
  - MALAISE [None]
  - VOMITING [None]
  - DECREASED APPETITE [None]
  - ASTHENIA [None]
  - BACK PAIN [None]
